APPROVED DRUG PRODUCT: LEVOTHYROXINE SODIUM
Active Ingredient: LEVOTHYROXINE SODIUM
Strength: 0.1MG **See current Annual Edition, 1.8 Description of Special Situations, Levothyroxine Sodium
Dosage Form/Route: TABLET;ORAL
Application: A215259 | Product #005 | TE Code: AB4
Applicant: ASCENT PHARMACEUTICALS INC
Approved: Jan 18, 2023 | RLD: No | RS: No | Type: RX